FAERS Safety Report 14038989 (Version 2)
Quarter: 2017Q4

REPORT INFORMATION
  Report Type: Spontaneous
  Country: HR (occurrence: TR)
  Receive Date: 20171004
  Receipt Date: 20171024
  Transmission Date: 20180321
  Serious: Yes (Death, Hospitalization, Other)
  Sender: FDA-Public Use
  Company Number: HR-ABBVIE-17P-216-2116675-00

PATIENT
  Age: 50 Year
  Sex: Male

DRUGS (1)
  1. VENCLYXTO [Suspect]
     Active Substance: VENETOCLAX
     Indication: CHRONIC LYMPHOCYTIC LEUKAEMIA
     Route: 048

REACTIONS (3)
  - Chronic lymphocytic leukaemia [Fatal]
  - Underdose [Fatal]
  - Infection [Fatal]
